FAERS Safety Report 25850313 (Version 1)
Quarter: 2025Q3

REPORT INFORMATION
  Report Type: Spontaneous
  Country: US (occurrence: US)
  Receive Date: 20250926
  Receipt Date: 20250926
  Transmission Date: 20251021
  Serious: Yes (Other)
  Sender: AMNEAL
  Company Number: US-AMNEAL PHARMACEUTICALS-2025-AMRX-03669

PATIENT
  Sex: Male

DRUGS (1)
  1. CREXONT [Suspect]
     Active Substance: CARBIDOPA\LEVODOPA
     Indication: Parkinson^s disease
     Dosage: 87.5/350MG 2 CAPSULES, 3 /DAY
     Route: 048
     Dates: start: 20250610, end: 20250919

REACTIONS (2)
  - Hallucination [Recovered/Resolved]
  - Drug ineffective [Unknown]
